FAERS Safety Report 9333433 (Version 1)
Quarter: 2013Q2

REPORT INFORMATION
  Report Type: Spontaneous
  Country: US (occurrence: US)
  Receive Date: 20130606
  Receipt Date: 20130606
  Transmission Date: 20140414
  Serious: Yes (Hospitalization)
  Sender: FDA-Public Use
  Company Number: US-B.I. PHARMACEUTICALS,INC./RIDGEFIELD-2013-BI-12214BP

PATIENT
  Age: 87 Year
  Sex: Female
  Weight: 52.16 kg

DRUGS (10)
  1. PRADAXA [Suspect]
     Indication: ANTICOAGULANT THERAPY
     Dosage: 300 MG
     Dates: start: 20110520, end: 20110629
  2. PRADAXA [Suspect]
     Indication: ATRIAL FIBRILLATION
  3. ALEVE [Concomitant]
     Indication: PAIN
  4. SOTALOL [Concomitant]
     Dosage: 160 MG
  5. CENTRUM SILVER [Concomitant]
  6. HYDROXYUREA [Concomitant]
     Dosage: 1000 MG
     Route: 048
  7. NITROFURANTOIN [Concomitant]
     Dosage: 200 MG
  8. LIPITOR [Concomitant]
     Dosage: 20 MG
  9. SYNTHROID [Concomitant]
     Dosage: 125 MCG
  10. PERCOCET [Concomitant]
     Indication: PAIN

REACTIONS (1)
  - Lower gastrointestinal haemorrhage [Unknown]
